FAERS Safety Report 25901807 (Version 3)
Quarter: 2025Q4

REPORT INFORMATION
  Report Type: Spontaneous
  Country: US (occurrence: US)
  Receive Date: 20251009
  Receipt Date: 20251103
  Transmission Date: 20260119
  Serious: No
  Sender: SANOFI AVENTIS
  Company Number: US-SA-2025SA300113

PATIENT
  Age: 29 Year
  Sex: Female

DRUGS (2)
  1. DUPIXENT [Suspect]
     Active Substance: DUPILUMAB
     Indication: Dermatitis atopic
     Dosage: 300 MG, QOW
     Route: 058
     Dates: start: 202508
  2. DUPIXENT [Suspect]
     Active Substance: DUPILUMAB
     Indication: Eczema

REACTIONS (4)
  - Eye disorder [Not Recovered/Not Resolved]
  - Foreign body in eye [Unknown]
  - Dry eye [Not Recovered/Not Resolved]
  - Conjunctivitis [Not Recovered/Not Resolved]

NARRATIVE: CASE EVENT DATE: 20250101
